FAERS Safety Report 13785271 (Version 1)
Quarter: 2017Q3

REPORT INFORMATION
  Report Type: Spontaneous
  Country: US (occurrence: US)
  Receive Date: 20170725
  Receipt Date: 20170725
  Transmission Date: 20171127
  Serious: No
  Sender: FDA-Public Use
  Company Number: US-UNITED THERAPEUTICS-UNT-2017-006393

PATIENT
  Sex: Male
  Weight: 109.75 kg

DRUGS (1)
  1. REMODULIN [Suspect]
     Active Substance: TREPROSTINIL
     Indication: PULMONARY HYPERTENSION
     Dosage: 0.138 ?G/KG, CONTINUING
     Route: 058
     Dates: start: 20110119

REACTIONS (6)
  - Oropharyngeal pain [Unknown]
  - Dyspnoea [Recovered/Resolved]
  - Diarrhoea [Unknown]
  - Exercise tolerance decreased [Recovered/Resolved]
  - Hypophagia [Not Recovered/Not Resolved]
  - Product physical issue [Unknown]
